FAERS Safety Report 23250855 (Version 1)
Quarter: 2023Q4

REPORT INFORMATION
  Report Type: Spontaneous
  Country: US (occurrence: None)
  Receive Date: 20231130
  Receipt Date: 20231130
  Transmission Date: 20240110
  Serious: Yes (Other)
  Sender: FDA-Public Use
  Company Number: None

PATIENT
  Age: 23 Year
  Sex: Female
  Weight: 84.6 kg

DRUGS (5)
  1. MIRTAZAPINE [Suspect]
     Active Substance: MIRTAZAPINE
     Dosage: FREQUENCY : AT BEDTIME;?
     Route: 048
     Dates: start: 20231106, end: 20231123
  2. BUPROPION [Concomitant]
     Active Substance: BUPROPION
  3. LAMOTRIGINE [Concomitant]
     Active Substance: LAMOTRIGINE
  4. SEASONIQUE [Concomitant]
     Active Substance: ETHINYL ESTRADIOL\LEVONORGESTREL
  5. CLARITIN [Concomitant]
     Active Substance: LORATADINE

REACTIONS (4)
  - Choking [None]
  - Cough [None]
  - Dysphagia [None]
  - Tongue movement disturbance [None]

NARRATIVE: CASE EVENT DATE: 20231123
